FAERS Safety Report 18311342 (Version 1)
Quarter: 2020Q3

REPORT INFORMATION
  Report Type: Spontaneous
  Country: CA (occurrence: CA)
  Receive Date: 20200925
  Receipt Date: 20200925
  Transmission Date: 20201103
  Serious: Yes (Other)
  Sender: FDA-Public Use
  Company Number: CA-ABBVIE-20K-028-3576208-00

PATIENT
  Sex: Female
  Weight: 62.4 kg

DRUGS (17)
  1. HYDROXYCHLOROQUINE [Suspect]
     Active Substance: HYDROXYCHLOROQUINE
     Indication: RHEUMATOID ARTHRITIS
     Route: 065
     Dates: start: 2013
  2. TOCILIZUMAB. [Suspect]
     Active Substance: TOCILIZUMAB
     Indication: PRODUCT USED FOR UNKNOWN INDICATION
     Route: 065
     Dates: start: 2014, end: 2015
  3. METHOTREXATE. [Suspect]
     Active Substance: METHOTREXATE
     Indication: RHEUMATOID ARTHRITIS
     Dosage: DRUG STARTED PRIOR TO 2013
     Route: 065
  4. LEFLUNOMIDE. [Suspect]
     Active Substance: LEFLUNOMIDE
     Indication: RHEUMATOID ARTHRITIS
     Route: 065
     Dates: start: 2013
  5. XELJANZ [Suspect]
     Active Substance: TOFACITINIB CITRATE
     Indication: PRODUCT USED FOR UNKNOWN INDICATION
     Route: 048
     Dates: start: 20150320, end: 201505
  6. XELJANZ [Suspect]
     Active Substance: TOFACITINIB CITRATE
     Route: 048
     Dates: end: 201601
  7. SULFASALAZINE. [Suspect]
     Active Substance: SULFASALAZINE
     Indication: RHEUMATOID ARTHRITIS
     Route: 065
     Dates: start: 2013
  8. ACTEMRA [Suspect]
     Active Substance: TOCILIZUMAB
     Indication: RHEUMATOID ARTHRITIS
     Route: 065
     Dates: start: 2014, end: 2015
  9. XELJANZ [Suspect]
     Active Substance: TOFACITINIB CITRATE
     Route: 048
     Dates: start: 201601, end: 201704
  10. XELJANZ [Suspect]
     Active Substance: TOFACITINIB CITRATE
     Route: 048
     Dates: start: 201704, end: 201704
  11. XELJANZ [Suspect]
     Active Substance: TOFACITINIB CITRATE
     Route: 048
     Dates: start: 2020, end: 20200823
  12. CODEINE [Suspect]
     Active Substance: CODEINE
     Indication: PRODUCT USED FOR UNKNOWN INDICATION
     Route: 065
  13. XELJANZ [Suspect]
     Active Substance: TOFACITINIB CITRATE
     Route: 048
     Dates: start: 202001, end: 2020
  14. XELJANZ [Suspect]
     Active Substance: TOFACITINIB CITRATE
     Route: 048
     Dates: start: 20200824
  15. XELJANZ [Suspect]
     Active Substance: TOFACITINIB CITRATE
     Route: 048
     Dates: start: 2020, end: 2020
  16. HUMIRA [Suspect]
     Active Substance: ADALIMUMAB
     Indication: RHEUMATOID ARTHRITIS
     Route: 058
     Dates: start: 2013, end: 2014
  17. XELJANZ [Suspect]
     Active Substance: TOFACITINIB CITRATE
     Route: 048
     Dates: start: 201704, end: 201708

REACTIONS (21)
  - Back pain [Recovered/Resolved]
  - Peripheral swelling [Unknown]
  - Inflammation [Not Recovered/Not Resolved]
  - Salt craving [Unknown]
  - Hyperphagia [Unknown]
  - Rheumatoid arthritis [Unknown]
  - Root canal infection [Recovered/Resolved]
  - Dyspnoea [Unknown]
  - Pathogen resistance [Recovered/Resolved]
  - Intentional dose omission [Unknown]
  - Red blood cell sedimentation rate increased [Unknown]
  - Hypothyroidism [Unknown]
  - Drug ineffective [Unknown]
  - Off label use [Unknown]
  - Drug hypersensitivity [Unknown]
  - Pulmonary pain [Unknown]
  - Cystitis [Unknown]
  - Tooth abscess [Recovered/Resolved]
  - Inappropriate schedule of product administration [Unknown]
  - Infection [Unknown]
  - Nasopharyngitis [Recovered/Resolved]

NARRATIVE: CASE EVENT DATE: 2017
